FAERS Safety Report 4867292-6 (Version None)
Quarter: 2005Q4

REPORT INFORMATION
  Report Type: 
  Country: None (occurrence: None)
  Receive Date: 20051227
  Receipt Date: 20051227
  Transmission Date: 20060501
  Serious: Yes (Other)
  Sender: FDA-Public Use
  Company Number: None

PATIENT
  Sex: Male
  Weight: 77.1115 kg

DRUGS (1)
  1. PAXIL [Suspect]
     Dosage: AT LEAST 20 MILLIGRAMS TWICE A DAY PO
     Route: 048
     Dates: start: 20000613, end: 20020617

REACTIONS (18)
  - ABDOMINAL DISCOMFORT [None]
  - AMNESIA [None]
  - DECREASED ACTIVITY [None]
  - DISORIENTATION [None]
  - DIZZINESS [None]
  - DRUG INEFFECTIVE [None]
  - EXCESSIVE SKIN [None]
  - EYE IRRITATION [None]
  - FEELING ABNORMAL [None]
  - GASTRIC DISORDER [None]
  - HEADACHE [None]
  - NAUSEA [None]
  - PAIN [None]
  - SKIN DISORDER [None]
  - STOMACH DISCOMFORT [None]
  - URINARY TRACT DISORDER [None]
  - WEIGHT INCREASED [None]
  - WEIGHT LOSS POOR [None]
